FAERS Safety Report 24703870 (Version 2)
Quarter: 2024Q4

REPORT INFORMATION
  Report Type: Spontaneous
  Country: CA (occurrence: CA)
  Receive Date: 20241206
  Receipt Date: 20241217
  Transmission Date: 20250115
  Serious: Yes (Death)
  Sender: REGENERON
  Company Number: CA-BAYER-2024A171733

PATIENT
  Sex: Female

DRUGS (1)
  1. EYLEA [Suspect]
     Active Substance: AFLIBERCEPT
     Indication: Diabetic retinal oedema
     Dosage: 44 INJECTION, SOLUTION FOR INJECTION IN PRE-FILLED SYRINGE, 40MG/ML
     Route: 031
     Dates: start: 20190529, end: 20240528

REACTIONS (1)
  - Neoplasm malignant [Fatal]

NARRATIVE: CASE EVENT DATE: 20240719
